FAERS Safety Report 4926993-1 (Version None)
Quarter: 2006Q1

REPORT INFORMATION
  Report Type: 
  Country: None (occurrence: None)
  Receive Date: 20060228
  Receipt Date: 20050929
  Transmission Date: 20060701
  Serious: No
  Sender: FDA-Public Use
  Company Number: US-GLAXOSMITHKLINE-A0576398A

PATIENT
  Age: 21 Year
  Sex: Female

DRUGS (5)
  1. LAMICTAL [Suspect]
     Indication: MAJOR DEPRESSION
     Dosage: 25MG TWICE PER DAY
     Route: 048
  2. ZYPREXA [Concomitant]
  3. VISTARIL [Concomitant]
  4. TEMAZEPAM [Concomitant]
  5. ADDERALL 10 [Concomitant]

REACTIONS (1)
  - DERMATITIS ACNEIFORM [None]
